FAERS Safety Report 8873280 (Version 2)
Quarter: 2014Q1

REPORT INFORMATION
  Report Type: Spontaneous
  Country: US (occurrence: US)
  Receive Date: 20121029
  Receipt Date: 20140310
  Transmission Date: 20141002
  Serious: Yes (Other)
  Sender: FDA-Public Use
  Company Number: CHPA2012US021148

PATIENT
  Age: 52 Year
  Sex: Female

DRUGS (10)
  1. PREVACID 24HR 15MG [Suspect]
     Indication: GASTROINTESTINAL DISORDER
     Dosage: 15 MG, QD
     Route: 048
  2. PREVACID 24HR 15MG [Suspect]
     Dosage: 30 MG, QD
     Route: 048
     Dates: start: 2009
  3. PREVACID 24HR 15MG [Suspect]
     Dosage: UNK, QD
  4. DRUG THERAPY NOS [Concomitant]
     Indication: GASTROINTESTINAL DISORDER
     Dosage: UNK, QD
  5. PROBIOTIC                          /07343501/ [Concomitant]
     Route: 048
  6. CARAFATE [Concomitant]
     Route: 048
  7. ALIGN [Concomitant]
     Route: 048
  8. ACIDOPHILIS [Concomitant]
     Route: 048
  9. PHAZYME [Concomitant]
     Route: 048
  10. IMITREX ^GLAXO^ [Concomitant]
     Route: 048

REACTIONS (5)
  - Loss of consciousness [Not Recovered/Not Resolved]
  - Off label use [Unknown]
  - Therapeutic response unexpected [Unknown]
  - Prescribed overdose [Unknown]
  - Incorrect drug administration duration [Unknown]
